FAERS Safety Report 25046254 (Version 3)
Quarter: 2025Q3

REPORT INFORMATION
  Report Type: Report from Study
  Country: US (occurrence: US)
  Receive Date: 20250306
  Receipt Date: 20250711
  Transmission Date: 20251020
  Serious: Yes (Other)
  Sender: NOVARTIS
  Company Number: US-002147023-NVSC2025US036403

PATIENT
  Sex: Male

DRUGS (1)
  1. LEQVIO [Suspect]
     Active Substance: INCLISIRAN SODIUM
     Indication: Product used for unknown indication
     Route: 058

REACTIONS (12)
  - Lower respiratory tract infection [Unknown]
  - Cataract [Unknown]
  - Nasopharyngitis [Unknown]
  - Eye disorder [Recovered/Resolved]
  - Vision blurred [Recovered/Resolved]
  - Headache [Recovered/Resolved]
  - Arthritis [Unknown]
  - Influenza [Unknown]
  - Single functional kidney [Unknown]
  - Increased appetite [Unknown]
  - Pyrexia [Unknown]
  - Myalgia [Unknown]
